FAERS Safety Report 9040708 (Version 1)
Quarter: 2013Q1

REPORT INFORMATION
  Report Type: Spontaneous
  Country: US (occurrence: US)
  Receive Date: 20130129
  Receipt Date: 20130129
  Transmission Date: 20140127
  Serious: Yes (Hospitalization)
  Sender: FDA-Public Use
  Company Number: US-CELGENEUS-163-21880-13013009

PATIENT
  Sex: Male

DRUGS (2)
  1. REVLIMID [Suspect]
     Indication: LYMPHOMA
     Dosage: 25 MILLIGRAM
     Route: 048
     Dates: start: 201106, end: 2011
  2. REVLIMID [Suspect]
     Dosage: 10 MILLIGRAM
     Route: 048
     Dates: start: 201201

REACTIONS (3)
  - Renal failure [Unknown]
  - Pneumonia [Unknown]
  - Ill-defined disorder [Unknown]
